FAERS Safety Report 4285959-8 (Version None)
Quarter: 2004Q1

REPORT INFORMATION
  Report Type: 
  Country: None (occurrence: None)
  Receive Date: 20040204
  Receipt Date: 20040204
  Transmission Date: 20041129
  Serious: Yes (Hospitalization)
  Sender: FDA-Public Use
  Company Number: None

PATIENT
  Sex: Male
  Weight: 79 kg

DRUGS (2)
  1. NAPROXEN [Suspect]
     Dosage: 500 MG BID ORAL
     Route: 048
     Dates: start: 20030918, end: 20031103
  2. PREDNISONE [Suspect]
     Dosage: 60 MG QD ORAL
     Route: 048
     Dates: start: 20031112, end: 20031201

REACTIONS (1)
  - GASTRIC ULCER HAEMORRHAGE [None]
